FAERS Safety Report 4893533-5 (Version None)
Quarter: 2005Q4

REPORT INFORMATION
  Report Type: 
  Country: None (occurrence: None)
  Receive Date: 20051223
  Receipt Date: 20050520
  Transmission Date: 20060501
  Serious: Yes (Hospitalization, Other)
  Sender: FDA-Public Use
  Company Number: PHEH2005US05788

PATIENT
  Age: 24 Year
  Sex: Male

DRUGS (7)
  1. CLOZARIL [Suspect]
     Indication: SCHIZOAFFECTIVE DISORDER
     Dosage: 6.25 MG, QD, ORAL
     Route: 048
     Dates: start: 20050317, end: 20050401
  2. DEPAKOTE [Concomitant]
  3. TOPAMAX [Concomitant]
  4. ACTOS [Concomitant]
  5. GLUCOPHAGE [Concomitant]
  6. MICRONASE [Concomitant]
  7. DIABETA [Concomitant]

REACTIONS (10)
  - AGITATION [None]
  - BLOOD PRESSURE DECREASED [None]
  - CATHETERISATION CARDIAC [None]
  - CONDITION AGGRAVATED [None]
  - EJECTION FRACTION DECREASED [None]
  - MYOCARDITIS [None]
  - PYREXIA [None]
  - TROPONIN INCREASED [None]
  - VENTRICULAR HYPERTROPHY [None]
  - VIRAL INFECTION [None]
